FAERS Safety Report 12735106 (Version 2)
Quarter: 2016Q3

REPORT INFORMATION
  Report Type: Report from Study
  Country: PL (occurrence: PL)
  Receive Date: 20160912
  Receipt Date: 20160928
  Transmission Date: 20161109
  Serious: Yes (Hospitalization, Other)
  Sender: FDA-Public Use
  Company Number: PL-CELLTRION INC.-2016PL003126

PATIENT

DRUGS (11)
  1. IMURAN [Concomitant]
     Active Substance: AZATHIOPRINE
     Indication: CROHN^S DISEASE
     Dosage: 150 MG, DAILY
     Route: 048
     Dates: start: 20150210
  2. REMSIMA [Suspect]
     Active Substance: INFLIXIMAB
     Dosage: 400 MG, SINGLE
     Route: 042
     Dates: start: 20150814, end: 20150814
  3. REMSIMA [Suspect]
     Active Substance: INFLIXIMAB
     Dosage: 350 MG, SINGLE
     Route: 042
     Dates: start: 20151009, end: 20151009
  4. REMSIMA [Suspect]
     Active Substance: INFLIXIMAB
     Dosage: 380 MG, SINGLE
     Route: 042
     Dates: start: 20160329, end: 20160329
  5. REMSIMA [Suspect]
     Active Substance: INFLIXIMAB
     Dosage: 400 MG, SINGLE
     Route: 042
     Dates: start: 20150707, end: 20150707
  6. REMSIMA [Suspect]
     Active Substance: INFLIXIMAB
     Dosage: 365 MG, SINGLE
     Route: 042
     Dates: start: 20151207, end: 20151207
  7. REMSIMA [Suspect]
     Active Substance: INFLIXIMAB
     Indication: CROHN^S DISEASE
     Dosage: 400 MG, SINGLE
     Route: 042
     Dates: start: 20150622, end: 20150622
  8. ASAMAX [Concomitant]
     Indication: CROHN^S DISEASE
     Dosage: 1000 MG, TID
     Route: 048
     Dates: start: 2013
  9. ENTOCORT [Concomitant]
     Active Substance: BUDESONIDE
     Indication: CROHN^S DISEASE
     Dosage: 3 MG, DAILY
     Route: 048
     Dates: start: 20150904
  10. REMSIMA [Suspect]
     Active Substance: INFLIXIMAB
     Dosage: 350 MG, SINGLE
     Route: 042
     Dates: start: 20160201, end: 20160201
  11. CLEXANE [Concomitant]
     Active Substance: ENOXAPARIN SODIUM
     Indication: VENOUS THROMBOSIS
     Dosage: 80 MG, DAILY
     Route: 058
     Dates: start: 20150904

REACTIONS (1)
  - Osteoporosis [Not Recovered/Not Resolved]

NARRATIVE: CASE EVENT DATE: 20160321
